FAERS Safety Report 4790100-9 (Version None)
Quarter: 2005Q3

REPORT INFORMATION
  Report Type: 
  Country: None (occurrence: None)
  Receive Date: 20050914
  Receipt Date: 20041216
  Transmission Date: 20060218
  Serious: Yes (Disabling)
  Sender: FDA-Public Use
  Company Number: 163-20785-04120469

PATIENT
  Age: 77 Year
  Sex: Female

DRUGS (4)
  1. THALOMID [Suspect]
     Indication: MULTIPLE MYELOMA
     Dosage: 150 MG, DAILY, ORAL;  200 MG, DAILY, ORAL
     Route: 048
     Dates: end: 20040601
  2. THALOMID [Suspect]
     Indication: MULTIPLE MYELOMA
     Dosage: 150 MG, DAILY, ORAL;  200 MG, DAILY, ORAL
     Route: 048
     Dates: start: 20030801
  3. DEXAMETHASONE [Concomitant]
  4. PREDNISONE TAB [Concomitant]

REACTIONS (2)
  - NEUROPATHY [None]
  - RASH [None]
